FAERS Safety Report 22877872 (Version 2)
Quarter: 2023Q4

REPORT INFORMATION
  Report Type: Spontaneous
  Country: BE (occurrence: BE)
  Receive Date: 20230829
  Receipt Date: 20231228
  Transmission Date: 20240110
  Serious: Yes (Other)
  Sender: FDA-Public Use
  Company Number: BE-SA-SAC20230821000652

PATIENT
  Sex: Male

DRUGS (1)
  1. PRALUENT [Suspect]
     Active Substance: ALIROCUMAB
     Indication: Product used for unknown indication
     Dosage: UNK

REACTIONS (5)
  - Monoplegia [Recovering/Resolving]
  - Pain in extremity [Unknown]
  - Skin reaction [Unknown]
  - Paraesthesia [Recovering/Resolving]
  - Injection site reaction [Recovering/Resolving]
